FAERS Safety Report 7426791-3 (Version None)
Quarter: 2011Q2

REPORT INFORMATION
  Report Type: 
  Country: None (occurrence: None)
  Receive Date: 20110420
  Receipt Date: 20110408
  Transmission Date: 20111010
  Serious: Yes (Other)
  Sender: FDA-Public Use
  Company Number: GB-MERCK-1104GBR00030

PATIENT
  Age: 58 Year
  Sex: Male
  Weight: 72 kg

DRUGS (3)
  1. ROSUVASTATIN CALCIUM [Concomitant]
     Route: 065
     Dates: start: 20101007, end: 20101230
  2. ZOCOR [Suspect]
     Route: 048
     Dates: start: 20110101
  3. SINGULAIR [Concomitant]
     Route: 048
     Dates: start: 20101007, end: 20101230

REACTIONS (1)
  - ABNORMAL LOSS OF WEIGHT [None]
